FAERS Safety Report 18661798 (Version 2)
Quarter: 2021Q1

REPORT INFORMATION
  Report Type: Report from Study
  Country: PL (occurrence: PL)
  Receive Date: 20201224
  Receipt Date: 20210108
  Transmission Date: 20210419
  Serious: Yes (Hospitalization, Other)
  Sender: FDA-Public Use
  Company Number: PL-BAUSCH-BL-2020-036844

PATIENT
  Age: 32 Year
  Sex: Female
  Weight: 97 kg

DRUGS (15)
  1. KETONAL (KETOPROFEN) [Suspect]
     Active Substance: KETOPROFEN
     Indication: PRODUCT USED FOR UNKNOWN INDICATION
     Route: 065
     Dates: start: 20200314, end: 20200316
  2. METOCLOPRAMID [Suspect]
     Active Substance: METOCLOPRAMIDE
     Route: 065
     Dates: start: 20200317, end: 20200321
  3. FRAXIPARINE [Suspect]
     Active Substance: NADROPARIN CALCIUM
     Indication: PRODUCT USED FOR UNKNOWN INDICATION
     Route: 065
     Dates: start: 20200314, end: 20200316
  4. BIOTAKSYM [Suspect]
     Active Substance: CEFOTAXIME SODIUM
     Indication: PRODUCT USED FOR UNKNOWN INDICATION
     Route: 065
     Dates: start: 20200314, end: 20200316
  5. METOCLOPRAMID [Suspect]
     Active Substance: METOCLOPRAMIDE
     Indication: PRODUCT USED FOR UNKNOWN INDICATION
     Route: 065
     Dates: start: 20200314, end: 20200316
  6. CONTROLOC [Suspect]
     Active Substance: PANTOPRAZOLE SODIUM
     Indication: PRODUCT USED FOR UNKNOWN INDICATION
     Dosage: UNK
     Route: 065
     Dates: start: 20200314, end: 20200316
  7. TRAMAL [Suspect]
     Active Substance: TRAMADOL
     Indication: PRODUCT USED FOR UNKNOWN INDICATION
     Route: 065
     Dates: start: 20200314, end: 20200316
  8. ETHINYLOESTRADIOL [Concomitant]
     Active Substance: ETHINYL ESTRADIOL
     Indication: PRODUCT USED FOR UNKNOWN INDICATION
     Dates: start: 20170307
  9. OLFEN UNO (DICLOFENACUM NATRICUM) [Concomitant]
     Indication: PRODUCT USED FOR UNKNOWN INDICATION
     Dates: start: 20171130
  10. EUTHYROX [Concomitant]
     Active Substance: LEVOTHYROXINE SODIUM
     Indication: PRODUCT USED FOR UNKNOWN INDICATION
     Dates: start: 20190820, end: 20200730
  11. OFATUMUMAB [Suspect]
     Active Substance: OFATUMUMAB
     Route: 065
     Dates: start: 20190819
  12. FRAXIPARINE [Suspect]
     Active Substance: NADROPARIN CALCIUM
     Route: 065
     Dates: start: 20200317, end: 20200326
  13. PYRALGIN [METAMIZOLE SODIUM] [Suspect]
     Active Substance: METAMIZOLE SODIUM
     Indication: PRODUCT USED FOR UNKNOWN INDICATION
     Route: 065
     Dates: start: 20200314, end: 20200316
  14. OFATUMUMAB [Suspect]
     Active Substance: OFATUMUMAB
     Indication: RELAPSING MULTIPLE SCLEROSIS
     Dosage: 20 MG, Q4W
     Route: 030
     Dates: start: 20190813
  15. NORELGESTROMIN [Concomitant]
     Active Substance: NORELGESTROMIN
     Indication: PRODUCT USED FOR UNKNOWN INDICATION
     Dates: start: 20170307

REACTIONS (3)
  - Peritoneal adhesions [Recovered/Resolved]
  - Obesity [Recovered/Resolved]
  - Cholecystitis [Recovered/Resolved]

NARRATIVE: CASE EVENT DATE: 20200314
